FAERS Safety Report 5344021-3 (Version None)
Quarter: 2007Q2

REPORT INFORMATION
  Report Type: 
  Country: None (occurrence: None)
  Receive Date: 20070416
  Receipt Date: 20070123
  Transmission Date: 20071010
  Serious: No
  Sender: FDA-Public Use
  Company Number: 2007SP000262

PATIENT
  Age: 65 Year
  Sex: Female
  Weight: 113.3993 kg

DRUGS (13)
  1. LUNESTA [Suspect]
     Indication: INSOMNIA
     Dosage: 3 MG;1X;ORAL
     Route: 048
     Dates: start: 20061101, end: 20061101
  2. PEPCID [Concomitant]
  3. ATORVASTATIN CALCIUM [Concomitant]
  4. DETROL [Concomitant]
  5. ZOLOFT [Concomitant]
  6. ATENOLOL [Concomitant]
  7. AMLODIPINE BESYLATE [Concomitant]
  8. ASPIRIN [Concomitant]
  9. VITAMIN E [Concomitant]
  10. ASCORBIC ACID [Concomitant]
  11. CALCIUM CHLORIDE [Concomitant]
  12. GLUCOSAMINE W/CHONDROITIN [Concomitant]
  13. CELEBREX [Concomitant]

REACTIONS (1)
  - DYSGEUSIA [None]
